FAERS Safety Report 24446131 (Version 1)
Quarter: 2024Q4

REPORT INFORMATION
  Report Type: Spontaneous
  Country: US (occurrence: US)
  Receive Date: 20241016
  Receipt Date: 20241016
  Transmission Date: 20250115
  Serious: Yes (Life-Threatening, Hospitalization, Other)
  Sender: STERISCIENCE PTE
  Company Number: US-STERISCIENCE B.V.-2024-ST-001638

PATIENT
  Age: 45 Year
  Sex: Female

DRUGS (6)
  1. PIPERACILLIN SODIUM\TAZOBACTAM SODIUM [Suspect]
     Active Substance: PIPERACILLIN SODIUM\TAZOBACTAM SODIUM
     Indication: Pneumonia klebsiella
     Dosage: UNK
     Route: 065
  2. VANCOMYCIN [Suspect]
     Active Substance: VANCOMYCIN
     Indication: Pneumonia klebsiella
     Dosage: UNK
     Route: 065
  3. MYCOPHENOLATE MOFETIL [Suspect]
     Active Substance: MYCOPHENOLATE MOFETIL
     Indication: Pyoderma gangrenosum
     Dosage: UNK
     Route: 065
  4. CEFEPIME [Suspect]
     Active Substance: CEFEPIME HYDROCHLORIDE
     Indication: Pneumonia klebsiella
     Dosage: UNK
     Route: 065
  5. METRONIDAZOLE [Suspect]
     Active Substance: METRONIDAZOLE
     Indication: Pneumonia klebsiella
     Dosage: UNK
     Route: 065
  6. PREDNISONE [Concomitant]
     Active Substance: PREDNISONE
     Indication: Pyoderma gangrenosum
     Dosage: UNK
     Route: 065

REACTIONS (4)
  - Encephalopathy [Unknown]
  - Condition aggravated [Unknown]
  - Drug ineffective [Unknown]
  - Off label use [Unknown]
